FAERS Safety Report 5893697-0 (Version None)
Quarter: 2008Q3

REPORT INFORMATION
  Report Type: 
  Country: None (occurrence: None)
  Receive Date: 20080923
  Receipt Date: 20080915
  Transmission Date: 20090109
  Serious: Yes (Hospitalization, Disabling, Other)
  Sender: FDA-Public Use
  Company Number: GB-ALLERGAN-0811563US

PATIENT
  Sex: Female
  Weight: 59 kg

DRUGS (4)
  1. TIMOLOL MALEATE [Suspect]
     Indication: GLAUCOMA
     Dosage: UNK, BID
     Route: 047
     Dates: start: 20070901
  2. BETNESOL [Concomitant]
     Indication: SURGERY
     Dosage: 1 DF, QID
     Route: 047
     Dates: start: 20070901
  3. CMC SODIUM SOL PF [Concomitant]
     Indication: DRY EYE
     Dosage: 1 DF, UNK
  4. CHLORAMPHENICOL [Concomitant]
     Indication: SURGERY
     Dosage: 1 DF, QID
     Dates: start: 20070901

REACTIONS (2)
  - HYPERCHOLESTEROLAEMIA [None]
  - KERATOPATHY [None]
